FAERS Safety Report 22109985 (Version 1)
Quarter: 2023Q1

REPORT INFORMATION
  Report Type: Spontaneous
  Country: GB (occurrence: GB)
  Receive Date: 20230317
  Receipt Date: 20230317
  Transmission Date: 20230418
  Serious: Yes (Hospitalization)
  Sender: FDA-Public Use
  Company Number: None

PATIENT
  Age: 83 Year
  Sex: Male
  Weight: 63 kg

DRUGS (11)
  1. MITOMYCIN [Suspect]
     Active Substance: MITOMYCIN
     Indication: Product used for unknown indication
  2. CALCIUM CARBONATE\CHOLECALCIFEROL [Concomitant]
     Active Substance: CALCIUM CARBONATE\CHOLECALCIFEROL
  3. ALLOPURINOL [Concomitant]
     Active Substance: ALLOPURINOL
  4. AMLODIPINE [Concomitant]
     Active Substance: AMLODIPINE BESYLATE
  5. ASPIRIN [Concomitant]
     Active Substance: ASPIRIN
  6. ATORVASTATIN [Concomitant]
     Active Substance: ATORVASTATIN
  7. FOLIC ACID [Concomitant]
     Active Substance: FOLIC ACID
  8. OMEPRAZOLE [Concomitant]
     Active Substance: OMEPRAZOLE
  9. PREDNISOLONE [Concomitant]
     Active Substance: PREDNISOLONE
  10. RAMIPRIL [Concomitant]
     Active Substance: RAMIPRIL
  11. RISEDRONATE SODIUM [Concomitant]
     Active Substance: RISEDRONATE SODIUM

REACTIONS (5)
  - Fatigue [Recovered/Resolved]
  - Swelling face [Recovered/Resolved]
  - Rash [Recovering/Resolving]
  - Tremor [Recovered/Resolved]
  - Urinary retention [Recovered/Resolved]

NARRATIVE: CASE EVENT DATE: 20230304
